FAERS Safety Report 24444285 (Version 2)
Quarter: 2024Q4

REPORT INFORMATION
  Report Type: Spontaneous
  Country: DE (occurrence: DE)
  Receive Date: 20241016
  Receipt Date: 20241017
  Transmission Date: 20250114
  Serious: No
  Sender: ROCHE
  Company Number: DE-ROCHE-2771146

PATIENT
  Age: 27 Year
  Sex: Female

DRUGS (9)
  1. RITUXIMAB [Suspect]
     Active Substance: RITUXIMAB
     Indication: Encephalitis viral
     Route: 042
  2. GANCICLOVIR [Suspect]
     Active Substance: GANCICLOVIR
     Indication: Encephalitis viral
     Route: 065
  3. BORTEZOMIB [Suspect]
     Active Substance: BORTEZOMIB
     Indication: Encephalitis viral
     Dosage: ON DAYS 1, 4, 8, AND 11
     Route: 065
  4. TREOSULFAN [Concomitant]
     Active Substance: TREOSULFAN
     Dosage: 14 G/M^2 ON DAYS -4 TO -2 RESP
  5. GRAFALON [Concomitant]
     Active Substance: LAPINE T-LYMPHOCYTE IMMUNE GLOBULIN
     Dosage: BW ON 2 CONSECUTIVE DAYS. WAS GIVEN ON DAYS -11 AND -10 AHEAD OF THE CONDITIONING REGIMEN TO MINIMIZ
  6. ACYCLOVIR [Concomitant]
     Active Substance: ACYCLOVIR
  7. PREDNISOLONE [Concomitant]
     Active Substance: PREDNISOLONE
  8. FLUDARABINE [Concomitant]
     Active Substance: FLUDARABINE PHOSPHATE
     Dosage: ON DAYS -6 TO -2 RESP.
  9. EVEROLIMUS [Concomitant]
     Active Substance: EVEROLIMUS
     Indication: Prophylaxis against graft versus host disease

REACTIONS (2)
  - Treatment failure [Unknown]
  - No adverse event [Unknown]
